FAERS Safety Report 25138191 (Version 1)
Quarter: 2025Q1

REPORT INFORMATION
  Report Type: Other
  Country: US (occurrence: US)
  Receive Date: 20250330
  Receipt Date: 20250330
  Transmission Date: 20250409
  Serious: Yes (Hospitalization, Other)
  Sender: Kanchan Healthcare
  Company Number: US-Kanchan Healthcare INC-2173889

PATIENT
  Age: 13 Year
  Sex: Female

DRUGS (4)
  1. ETHAMBUTOL HYDROCHLORIDE [Suspect]
     Active Substance: ETHAMBUTOL HYDROCHLORIDE
     Indication: Pulmonary tuberculosis
  2. RIFAMPIN [Suspect]
     Active Substance: RIFAMPIN
  3. PYRAZINAMIDE [Suspect]
     Active Substance: PYRAZINAMIDE
  4. ISONIAZID [Suspect]
     Active Substance: ISONIAZID

REACTIONS (3)
  - Cutaneous vasculitis [Unknown]
  - Rash morbilliform [Unknown]
  - Tuberculid [Unknown]
